FAERS Safety Report 4433119-X (Version None)
Quarter: 2004Q3

REPORT INFORMATION
  Report Type: 
  Country: None (occurrence: None)
  Receive Date: 20040823
  Receipt Date: 20040811
  Transmission Date: 20050211
  Serious: No
  Sender: FDA-Public Use
  Company Number: 2004UW13182

PATIENT
  Age: 64 Year
  Sex: Female
  Weight: 70.3075 kg

DRUGS (2)
  1. ARIMIDEX [Suspect]
     Indication: BREAST CANCER
     Dosage: 2 TABLETS DAILY ORAL
     Route: 048
     Dates: start: 19980714, end: 20030703
  2. NOLVADEX [Suspect]
     Dosage: 20 MG PO
     Route: 048
     Dates: start: 19980714, end: 20030129

REACTIONS (1)
  - UTERINE POLYP [None]
